FAERS Safety Report 21920964 (Version 1)
Quarter: 2023Q1

REPORT INFORMATION
  Report Type: Spontaneous
  Country: US (occurrence: US)
  Receive Date: 20230127
  Receipt Date: 20230127
  Transmission Date: 20230418
  Serious: Yes (Life-Threatening, Hospitalization, Other)
  Sender: FDA-Public Use
  Company Number: US-INCYTE CORPORATION-2023IN000879

PATIENT

DRUGS (17)
  1. JAKAFI [Suspect]
     Active Substance: RUXOLITINIB
     Indication: Myelofibrosis
     Dosage: UNK
     Route: 048
     Dates: start: 20180523, end: 20210712
  2. JAKAFI [Suspect]
     Active Substance: RUXOLITINIB
     Dosage: UNK
     Route: 048
     Dates: start: 20180531
  3. JAKAFI [Suspect]
     Active Substance: RUXOLITINIB
     Dosage: 10 MILLIGRAM EACH 21 DAY CYCLE, 2/DAYS
     Route: 048
     Dates: start: 20210713, end: 20220222
  4. NAVITOCLAX [Suspect]
     Active Substance: NAVITOCLAX
     Indication: Myelofibrosis
     Dosage: 100 MILLIGRAM EACH 21 DAY CYCLE, EVERY 1 DAY
     Route: 048
     Dates: start: 20210713, end: 20210719
  5. NAVITOCLAX [Suspect]
     Active Substance: NAVITOCLAX
     Dosage: 200 MILLIGRAM EACH 21 DAY CYCLE, EVERY 1 DAY
     Route: 048
     Dates: start: 20210720, end: 20210809
  6. NAVITOCLAX [Suspect]
     Active Substance: NAVITOCLAX
     Dosage: 100 MILLIGRAM EACH 21 DAY CYCLE, EVERY 1 DAY
     Route: 048
     Dates: start: 20210810, end: 20211004
  7. NAVITOCLAX [Suspect]
     Active Substance: NAVITOCLAX
     Dosage: 200 MILLIGRAM EACH 21 DAY CYCLE, EVERY 1 DAY
     Route: 048
     Dates: start: 20211005, end: 20211026
  8. NAVITOCLAX [Suspect]
     Active Substance: NAVITOCLAX
     Dosage: 150 MILLIGRAM EACH 21 DAY CYCLE, EVERY 1 DAY
     Route: 048
     Dates: start: 20211027, end: 20211115
  9. NAVITOCLAX [Suspect]
     Active Substance: NAVITOCLAX
     Dosage: 100 MILLIGRAM EACH 21 DAY CYCLE, EVERY 1 DAY
     Route: 048
     Dates: start: 20211116, end: 20220222
  10. ALLOPURINOL [Concomitant]
     Active Substance: ALLOPURINOL
     Indication: Gout
     Dosage: 300 MG, EVERY 1 DAYS
     Route: 065
     Dates: start: 20180418
  11. ASPIRIN [Concomitant]
     Active Substance: ASPIRIN
     Indication: Cardiovascular event prophylaxis
     Dosage: 81 MG, EVERY 1 DAYS
     Route: 065
     Dates: start: 2005
  12. DOXAZOSIN MESYLATE [Concomitant]
     Active Substance: DOXAZOSIN MESYLATE
     Indication: Automatic bladder
     Dosage: 1 MG, EVERY 1 DAYS
     Route: 065
     Dates: start: 20180523
  13. DOXAZOSIN MESYLATE [Concomitant]
     Active Substance: DOXAZOSIN MESYLATE
     Indication: Hypertonic bladder
  14. SIMVASTATIN [Concomitant]
     Active Substance: SIMVASTATIN
     Indication: Hypercholesterolaemia
     Dosage: 40 MG, EVERY 1 DAYS
     Route: 065
  15. DICLOFENAC [Concomitant]
     Active Substance: DICLOFENAC
     Indication: Osteoarthritis
     Dosage: AS NECESSARY
     Route: 065
     Dates: start: 2009
  16. FERROUS SULFATE [Concomitant]
     Active Substance: FERROUS SULFATE
     Indication: Anaemia
     Dosage: 325 MG, EVERY 2 DAYS
     Route: 065
     Dates: start: 20220202
  17. FLOMAX [Concomitant]
     Active Substance: TAMSULOSIN HYDROCHLORIDE
     Indication: Urinary retention
     Dosage: 0.4 MG, EVERY 1 DAYS
     Route: 065
     Dates: start: 20220314

REACTIONS (9)
  - Urinary tract infection staphylococcal [Recovered/Resolved]
  - Pancytopenia [Unknown]
  - Urinary retention [Unknown]
  - Squamous cell carcinoma of skin [Recovered/Resolved]
  - Rash [Not Recovered/Not Resolved]
  - Diarrhoea [Unknown]
  - Constipation [Not Recovered/Not Resolved]
  - Headache [Not Recovered/Not Resolved]
  - Anaemia [Not Recovered/Not Resolved]

NARRATIVE: CASE EVENT DATE: 20181101
